FAERS Safety Report 4965932-4 (Version None)
Quarter: 2006Q2

REPORT INFORMATION
  Report Type: 
  Country: None (occurrence: None)
  Receive Date: 20060406
  Receipt Date: 20060406
  Transmission Date: 20061013
  Serious: Yes (Other)
  Sender: FDA-Public Use
  Company Number: None

PATIENT
  Age: 82 Year
  Sex: Female

DRUGS (2)
  1. AMIODARONE HCL [Suspect]
     Dosage: 200 MG BID PO
     Route: 048
  2. AMANTADINE HCL [Concomitant]

REACTIONS (3)
  - DRUG DISPENSING ERROR [None]
  - FALL [None]
  - WRONG DRUG ADMINISTERED [None]
